FAERS Safety Report 16937211 (Version 1)
Quarter: 2019Q4

REPORT INFORMATION
  Report Type: Spontaneous
  Country: US (occurrence: US)
  Receive Date: 20191018
  Receipt Date: 20191018
  Transmission Date: 20200122
  Serious: Yes (Death, Hospitalization, Other)
  Sender: FDA-Public Use
  Company Number: US-GLAXOSMITHKLINE-US2019GSK188254

PATIENT
  Age: 21 Year
  Sex: Female

DRUGS (4)
  1. PHENYTOIN. [Concomitant]
     Active Substance: PHENYTOIN
  2. PHENOBARBITAL. [Concomitant]
     Active Substance: PHENOBARBITAL
  3. LEVETIRACETAM. [Concomitant]
     Active Substance: LEVETIRACETAM
  4. LAMOTRIGINE. [Suspect]
     Active Substance: LAMOTRIGINE
     Indication: SEIZURE
     Dosage: UNK
     Route: 065

REACTIONS (13)
  - Haemophagocytic lymphohistiocytosis [Fatal]
  - Drug reaction with eosinophilia and systemic symptoms [Unknown]
  - Thrombocytopenia [Unknown]
  - Pancreatitis [Unknown]
  - Hypotension [Unknown]
  - Infection [Unknown]
  - Colitis [Unknown]
  - Diarrhoea [Unknown]
  - Multiple organ dysfunction syndrome [Fatal]
  - Enteritis [Unknown]
  - Stevens-Johnson syndrome [Unknown]
  - Hepatitis [Unknown]
  - Gastrointestinal injury [Unknown]
